FAERS Safety Report 17673339 (Version 1)
Quarter: 2020Q2

REPORT INFORMATION
  Report Type: Spontaneous
  Country: CN (occurrence: CN)
  Receive Date: 20200415
  Receipt Date: 20200415
  Transmission Date: 20200713
  Serious: Yes (Disabling, Other)
  Sender: FDA-Public Use
  Company Number: CN-VALIDUS PHARMACEUTICALS LLC-CN-2020VAL000309

PATIENT

DRUGS (5)
  1. CALCITRIOL. [Suspect]
     Active Substance: CALCITRIOL
     Dosage: UNK
     Route: 048
     Dates: start: 20150401
  2. CALCITRIOL. [Suspect]
     Active Substance: CALCITRIOL
     Dosage: UNK
     Route: 048
     Dates: start: 20160401
  3. CALCITRIOL. [Suspect]
     Active Substance: CALCITRIOL
     Dosage: UNK
     Route: 048
     Dates: start: 20140401
  4. CALCITRIOL. [Suspect]
     Active Substance: CALCITRIOL
     Indication: CHRONIC KIDNEY DISEASE
     Dosage: UNK
     Route: 048
     Dates: start: 20080101
  5. CALCITRIOL. [Suspect]
     Active Substance: CALCITRIOL
     Dosage: 1 ?G, 2 IN 1 WK
     Route: 048
     Dates: start: 20130101

REACTIONS (7)
  - Chronic kidney disease-mineral and bone disorder [Unknown]
  - Femoral neck fracture [Unknown]
  - Hip fracture [Unknown]
  - Interstitial lung disease [Unknown]
  - Osteitis deformans [Unknown]
  - Parathyroid tumour [Unknown]
  - Cardiomegaly [Unknown]

NARRATIVE: CASE EVENT DATE: 20130406
